FAERS Safety Report 23696797 (Version 1)
Quarter: 2024Q2

REPORT INFORMATION
  Report Type: Report from Study
  Country: US (occurrence: None)
  Receive Date: 20240402
  Receipt Date: 20240402
  Transmission Date: 20240716
  Serious: Yes (Other)
  Sender: FDA-Public Use
  Company Number: 2024A072675

PATIENT

DRUGS (1)
  1. BREZTRI [Suspect]
     Active Substance: BUDESONIDE\FORMOTEROL\GLYCOPYRROLATE
     Dosage: 160/9/4.8 MCG. TWO PUFFS TWICE EACH DAY
     Route: 055

REACTIONS (4)
  - Leukaemia [Unknown]
  - Dementia [Unknown]
  - Illness [Unknown]
  - Insurance issue [Unknown]
